FAERS Safety Report 25654914 (Version 1)
Quarter: 2025Q3

REPORT INFORMATION
  Report Type: Spontaneous
  Country: EG (occurrence: EG)
  Receive Date: 20250807
  Receipt Date: 20250807
  Transmission Date: 20251021
  Serious: Yes (Other)
  Sender: HIKMA
  Company Number: EG-HIKMA PHARMACEUTICALS-EG-H14001-25-09071

PATIENT
  Age: 42 Year
  Sex: Female
  Weight: 47 kg

DRUGS (2)
  1. PACLITAXEL [Suspect]
     Active Substance: PACLITAXEL
     Indication: Breast cancer
     Dosage: 118.4 MILLIGRAM, WEEKLY
     Route: 041
  2. PACLITAXEL [Suspect]
     Active Substance: PACLITAXEL
     Dosage: 118.4 MILLIGRAM, WEEKLY, WEEK 10
     Route: 041
     Dates: start: 20250628

REACTIONS (5)
  - Neutropenia [Recovered/Resolved]
  - Leukopenia [Recovered/Resolved]
  - Pruritus [Recovered/Resolved]
  - Neuropathy peripheral [Not Recovered/Not Resolved]
  - Vision blurred [Not Recovered/Not Resolved]

NARRATIVE: CASE EVENT DATE: 20250628
